FAERS Safety Report 12428052 (Version 3)
Quarter: 2016Q3

REPORT INFORMATION
  Report Type: Report from Study
  Country: US (occurrence: US)
  Receive Date: 20160602
  Receipt Date: 20160713
  Transmission Date: 20161109
  Serious: Yes (Hospitalization)
  Sender: FDA-Public Use
  Company Number: US-ROCHE-1672713

PATIENT
  Age: 69 Year
  Sex: Female
  Weight: 70.5 kg

DRUGS (22)
  1. ZOFRAN [Concomitant]
     Active Substance: ONDANSETRON HYDROCHLORIDE
     Dosage: NAUSEA/VOMITING PREVENTION
     Route: 065
     Dates: start: 20150810
  2. FENOFIBRATE. [Concomitant]
     Active Substance: FENOFIBRATE
     Indication: BLOOD CHOLESTEROL INCREASED
  3. ATEZOLIZUMAB [Suspect]
     Active Substance: ATEZOLIZUMAB
     Indication: NON-SMALL CELL LUNG CANCER
     Dosage: MOST RECENT DOSE PRIOR TO SERIOUS ADVERSE EVENT ON 12/NOV/2015 (PRIOR TO DIARRHEA), 28/DEC/2015 (PRI
     Route: 042
     Dates: start: 20150827
  4. LOPRESSOR [Concomitant]
     Active Substance: METOPROLOL TARTRATE
     Indication: HYPERTENSION
  5. FOLIC ACID. [Concomitant]
     Active Substance: FOLIC ACID
     Dosage: SUPPLEMENT
     Route: 065
     Dates: start: 20150810
  6. PREVACID [Concomitant]
     Active Substance: LANSOPRAZOLE
     Dosage: INDICATION: STOMACH ACID
     Route: 065
     Dates: start: 20150830
  7. MENTHOL/ZINC OXIDE [Concomitant]
     Active Substance: MENTHOL\ZINC OXIDE
     Indication: DERMATITIS
     Route: 065
     Dates: start: 20150830
  8. COZAAR [Concomitant]
     Active Substance: LOSARTAN POTASSIUM
     Indication: HYPERTENSION
  9. NISOLDIPINE. [Concomitant]
     Active Substance: NISOLDIPINE
     Indication: HYPERTENSION
  10. COMPAZINE [Concomitant]
     Active Substance: PROCHLORPERAZINE MALEATE
     Indication: NAUSEA
     Route: 065
     Dates: start: 20150827
  11. NICODERM CQ [Concomitant]
     Active Substance: NICOTINE
     Indication: EX-TOBACCO USER
     Dosage: PATCH
     Route: 065
     Dates: start: 201506
  12. CARBOPLATIN. [Suspect]
     Active Substance: CARBOPLATIN
     Indication: NON-SMALL CELL LUNG CANCER
     Dosage: MOST RECENT DOSE PRIOR TO SERIOUS ADVERSE EVENT 369 MG, ON 24/SEP/2015 (PRIOR TO DIARRHEA, CLOSTRIDI
     Route: 042
     Dates: start: 20150827
  13. MENTHOL/ZINC OXIDE [Concomitant]
     Active Substance: MENTHOL\ZINC OXIDE
     Indication: DERMATITIS
     Route: 065
     Dates: start: 20150830
  14. ZOCOR [Concomitant]
     Active Substance: SIMVASTATIN
     Indication: BLOOD CHOLESTEROL INCREASED
  15. PRESERVISION [Concomitant]
     Active Substance: MINERALS\VITAMINS
     Dosage: VISION SUPPLEMENT
     Route: 065
  16. FOLIC ACID. [Concomitant]
     Active Substance: FOLIC ACID
     Dosage: SUPPLEMENT
     Route: 065
     Dates: start: 20150730
  17. COMPAZINE [Concomitant]
     Active Substance: PROCHLORPERAZINE MALEATE
     Indication: VOMITING
  18. AUGMENTIN [Concomitant]
     Active Substance: AMOXICILLIN\CLAVULANATE POTASSIUM
     Indication: URINARY TRACT INFECTION
     Route: 065
     Dates: start: 20160107, end: 20160114
  19. PEPCID [Concomitant]
     Active Substance: FAMOTIDINE
     Indication: DYSPEPSIA
     Route: 065
     Dates: start: 20160128
  20. PROZAC [Concomitant]
     Active Substance: FLUOXETINE HYDROCHLORIDE
     Indication: DEPRESSION
     Route: 065
     Dates: start: 20150915
  21. NAB-PACLITAXEL [Suspect]
     Active Substance: PACLITAXEL
     Indication: NON-SMALL CELL LUNG CANCER
     Dosage: LAST DOSE PRIOR TO THE SAE:  28/DEC/2015 (PRIOR TO MEDICATION RELATED COLITIS), 21/JAN/2016 (PRIOR T
     Route: 042
     Dates: start: 20150827
  22. NORCO [Concomitant]
     Active Substance: ACETAMINOPHEN\HYDROCODONE BITARTRATE
     Indication: PAIN
     Route: 065
     Dates: start: 20150830

REACTIONS (3)
  - Colitis [Recovered/Resolved]
  - Clostridium difficile colitis [Not Recovered/Not Resolved]
  - Diarrhoea [Recovered/Resolved]

NARRATIVE: CASE EVENT DATE: 20151202
